FAERS Safety Report 8555799 (Version 3)
Quarter: 2013Q3

REPORT INFORMATION
  Report Type: Spontaneous
  Country: US (occurrence: US)
  Receive Date: 20120510
  Receipt Date: 20130827
  Transmission Date: 20140515
  Serious: Yes (Other)
  Sender: FDA-Public Use
  Company Number: US-ROCHE-1064999

PATIENT
  Age: 17 Year
  Sex: Female
  Weight: 52.21 kg

DRUGS (4)
  1. ACCUTANE [Suspect]
     Indication: ACNE
     Route: 065
     Dates: start: 2003, end: 2004
  2. ACCUTANE [Suspect]
     Route: 065
     Dates: start: 20040129, end: 20040406
  3. ACCUTANE [Suspect]
     Route: 065
     Dates: start: 20090521
  4. AMNESTEEM [Suspect]
     Indication: ACNE
     Route: 065
     Dates: start: 200906, end: 200910

REACTIONS (8)
  - Colitis ulcerative [Unknown]
  - Crohn^s disease [Unknown]
  - Inflammatory bowel disease [Unknown]
  - Irritable bowel syndrome [Unknown]
  - Anxiety [Unknown]
  - Depression [Unknown]
  - Blood cholesterol increased [Unknown]
  - Blood triglycerides increased [Unknown]
